FAERS Safety Report 5040577-9 (Version None)
Quarter: 2006Q2

REPORT INFORMATION
  Report Type: 
  Country: None (occurrence: None)
  Receive Date: 20060630
  Receipt Date: 20060622
  Transmission Date: 20061013
  Serious: Yes (Other)
  Sender: FDA-Public Use
  Company Number: US-ROCHE-452984

PATIENT
  Age: 56 Year
  Sex: Female

DRUGS (3)
  1. BUMEX [Suspect]
     Indication: DRUG USE FOR UNKNOWN INDICATION
     Route: 065
  2. BUMEX [Suspect]
     Dosage: DOSAGE REGIMEN: STATED AS ONE MG.
     Route: 065
  3. CARTIA XT [Concomitant]
     Dosage: DOSING REGIMEN STATED AS 360 MG.

REACTIONS (1)
  - DIABETES MELLITUS [None]
